FAERS Safety Report 9855332 (Version 2)
Quarter: 2014Q1

REPORT INFORMATION
  Report Type: Spontaneous
  Country: DE (occurrence: DE)
  Receive Date: 20140130
  Receipt Date: 20140218
  Transmission Date: 20141002
  Serious: Yes (Other)
  Sender: FDA-Public Use
  Company Number: DE-ELI_LILLY_AND_COMPANY-DE201401007285

PATIENT
  Age: 70 Year
  Sex: Male

DRUGS (2)
  1. EFIENT [Suspect]
     Indication: ACUTE MYOCARDIAL INFARCTION
     Dosage: 10 MG, UNKNOWN
     Route: 048
  2. ASS [Concomitant]

REACTIONS (2)
  - Gastrointestinal haemorrhage [Unknown]
  - Thrombosis in device [Unknown]
